FAERS Safety Report 13468353 (Version 1)
Quarter: 2017Q2

REPORT INFORMATION
  Report Type: Report from Study
  Country: ES (occurrence: ES)
  Receive Date: 20170421
  Receipt Date: 20170421
  Transmission Date: 20170830
  Serious: Yes (Hospitalization)
  Sender: FDA-Public Use
  Company Number: ES-TEVA-761964ROM

PATIENT
  Age: 93 Year
  Sex: Female

DRUGS (5)
  1. ALPRAZOLAM ALTER [Suspect]
     Active Substance: ALPRAZOLAM
     Indication: DEPRESSION
     Dosage: 624.999 MICROGRAM DAILY;
     Route: 048
     Dates: start: 20150414, end: 20151008
  2. CITALOPRAM [Suspect]
     Active Substance: CITALOPRAM HYDROBROMIDE
     Indication: DEPRESSION
     Dosage: 30 MILLIGRAM DAILY;
     Route: 048
     Dates: start: 20121108, end: 20151008
  3. LYRICA [Suspect]
     Active Substance: PREGABALIN
     Indication: OSTEOARTHRITIS
     Dosage: 125.001 MILLIGRAM DAILY;
     Route: 048
     Dates: start: 20141107, end: 20151008
  4. FENTANYL TRANSDERMAL SYSTEM [Suspect]
     Active Substance: FENTANYL
     Indication: OSTEOARTHRITIS
     Route: 062
     Dates: start: 20150923, end: 20151008
  5. DEPRAX [Suspect]
     Active Substance: TRAZODONE HYDROCHLORIDE
     Indication: DEPRESSION
     Dosage: 250 MILLIGRAM DAILY;
     Route: 048
     Dates: start: 20141107, end: 20151008

REACTIONS (3)
  - Altered state of consciousness [Unknown]
  - Syncope [Recovered/Resolved]
  - Pallor [Unknown]

NARRATIVE: CASE EVENT DATE: 20151008
